FAERS Safety Report 17881621 (Version 1)
Quarter: 2020Q2

REPORT INFORMATION
  Report Type: Spontaneous
  Country: US (occurrence: US)
  Receive Date: 20200610
  Receipt Date: 20200610
  Transmission Date: 20200714
  Serious: No
  Sender: FDA-Public Use
  Company Number: US-SA-2020SA146985

PATIENT

DRUGS (4)
  1. CENTRUM WOMEN [Concomitant]
     Active Substance: VITAMINS
  2. VIT D [Concomitant]
     Active Substance: VITAMIN D NOS
  3. ZOLOFT [Concomitant]
     Active Substance: SERTRALINE HYDROCHLORIDE
  4. AUBAGIO [Suspect]
     Active Substance: TERIFLUNOMIDE
     Indication: MULTIPLE SCLEROSIS
     Dosage: 7 MG, QD
     Route: 048
     Dates: start: 20200325

REACTIONS (1)
  - Diarrhoea [Unknown]
